FAERS Safety Report 6054523-2 (Version None)
Quarter: 2009Q1

REPORT INFORMATION
  Report Type: 
  Country: None (occurrence: None)
  Receive Date: 20090127
  Receipt Date: 20090120
  Transmission Date: 20090719
  Serious: Yes (Other)
  Sender: FDA-Public Use
  Company Number: PHBS2009US00561

PATIENT
  Age: 28 Year
  Sex: Female

DRUGS (8)
  1. BASILIXIMAB [Suspect]
     Indication: IMMUNOSUPPRESSION
     Dosage: UNK
  2. MYCOPHENOLIC ACID [Suspect]
     Indication: IMMUNOSUPPRESSION
     Dosage: UNK
  3. MYCOPHENOLATE MOFETIL [Suspect]
     Indication: IMMUNOSUPPRESSION
     Dosage: UNK
  4. VALGANCICLOVIR HCL [Suspect]
     Dosage: UNK
  5. PREDNISONE [Concomitant]
     Indication: IMMUNOSUPPRESSION
     Dosage: UNK
  6. TACROLIMUS [Concomitant]
     Indication: IMMUNOSUPPRESSION
     Dosage: UNK
  7. CORTICOSTEROIDS [Concomitant]
  8. BORTEZOMIB [Concomitant]

REACTIONS (4)
  - BLOOD CREATININE INCREASED [None]
  - FEBRILE NEUTROPENIA [None]
  - KIDNEY TRANSPLANT REJECTION [None]
  - PLASMAPHERESIS [None]
